FAERS Safety Report 6245417-8 (Version None)
Quarter: 2009Q2

REPORT INFORMATION
  Report Type: 
  Country: None (occurrence: None)
  Receive Date: 20090625
  Receipt Date: 20090527
  Transmission Date: 20091009
  Serious: No
  Sender: FDA-Public Use
  Company Number: US-BAYER-200911662BCC

PATIENT
  Age: 69 Year
  Sex: Female
  Weight: 100 kg

DRUGS (2)
  1. ALEVE (CAPLET) [Suspect]
     Indication: ARTHRITIS
     Dosage: TAKES 1 ALEVE CAPLET EVERY DAY IN THE MORNING AND ON THE DAYS SHE WORKS TAKE A 2ND ONE 6 HOURS LATER
     Route: 048
     Dates: start: 20070501
  2. IBUPROFEN [Concomitant]
     Route: 065

REACTIONS (1)
  - ECCHYMOSIS [None]
